FAERS Safety Report 9476805 (Version 1)
Quarter: 2013Q3

REPORT INFORMATION
  Report Type: Spontaneous
  Country: US (occurrence: US)
  Receive Date: 20130826
  Receipt Date: 20130826
  Transmission Date: 20140515
  Serious: No
  Sender: FDA-Public Use
  Company Number: US-TARO-2012P1050548

PATIENT
  Age: 69 Year
  Sex: Female
  Weight: 77.11 kg

DRUGS (6)
  1. CLOBETASOL PROPIONATE OINTMENT USP 0.05% [Suspect]
     Route: 061
     Dates: start: 20120717
  2. CRESTOR [Concomitant]
  3. ASPIRIN [Concomitant]
  4. CALCIUM/MAGNESIUM/VITAMIN D3 2000/800/1000MG [Concomitant]
  5. METOPROLOL [Concomitant]
  6. COQ10 [Concomitant]

REACTIONS (1)
  - Rash [Not Recovered/Not Resolved]
